FAERS Safety Report 10098494 (Version 1)
Quarter: 2014Q2

REPORT INFORMATION
  Report Type: Spontaneous
  Country: US (occurrence: None)
  Receive Date: 20140422
  Receipt Date: 20140422
  Transmission Date: 20141212
  Serious: Yes (Other)
  Sender: FDA-Public Use
  Company Number: None

PATIENT
  Age: 40 Year
  Sex: Female
  Weight: 95.71 kg

DRUGS (12)
  1. TECFIDERA [Suspect]
     Indication: MULTIPLE SCLEROSIS
     Dosage: 240MG TAB, ONE TAB
     Route: 048
     Dates: start: 20130729, end: 20131218
  2. VITAMIN D [Concomitant]
  3. MAGNESIUM [Concomitant]
  4. VITAMIN B2 100 [Concomitant]
  5. SUMATRIPTAN [Concomitant]
  6. MAXALT [Concomitant]
  7. CALCIUM [Concomitant]
  8. PRAVASTATIN [Concomitant]
  9. VENLAFAXINE [Concomitant]
  10. TECFIDERA [Concomitant]
  11. MODAFINIL [Concomitant]
  12. ATIVAN [Concomitant]

REACTIONS (1)
  - Herpes zoster [None]
